FAERS Safety Report 19850568 (Version 2)
Quarter: 2022Q4

REPORT INFORMATION
  Report Type: Spontaneous
  Country: US (occurrence: US)
  Receive Date: 20210918
  Receipt Date: 20221004
  Transmission Date: 20230113
  Serious: Yes (Other)
  Sender: FDA-Public Use
  Company Number: US-SA-SAC20210915000806

PATIENT
  Age: 51 Year
  Sex: Male

DRUGS (2)
  1. ZANTAC [Suspect]
     Active Substance: RANITIDINE HYDROCHLORIDE
     Indication: Dyspepsia
     Dosage: 75 MG,FREQUENCY: OTHER
     Dates: start: 201401
  2. ZANTAC [Suspect]
     Active Substance: RANITIDINE HYDROCHLORIDE
     Dosage: 150 MG, FREQUENCY: OTHER
     Dates: end: 201911

REACTIONS (3)
  - Oesophageal carcinoma [Not Recovered/Not Resolved]
  - Hepatic cancer stage III [Not Recovered/Not Resolved]
  - Gastric cancer stage III [Not Recovered/Not Resolved]

NARRATIVE: CASE EVENT DATE: 20200601
